FAERS Safety Report 7056129-5 (Version None)
Quarter: 2010Q4

REPORT INFORMATION
  Report Type: 
  Country: None (occurrence: None)
  Receive Date: 20101021
  Receipt Date: 20101014
  Transmission Date: 20110411
  Serious: Yes (Hospitalization)
  Sender: FDA-Public Use
  Company Number: US-ABBOTT-10P-163-0678902-00

PATIENT
  Sex: Male
  Weight: 63.56 kg

DRUGS (9)
  1. NIASPAN [Suspect]
     Indication: HIGH DENSITY LIPOPROTEIN DECREASED
     Dates: start: 20020101, end: 20060101
  2. NIASPAN [Suspect]
     Dates: start: 20060101
  3. LISINOOPRIL [Suspect]
     Indication: HYPERTENSION
  4. ZOCOR [Concomitant]
     Indication: MYOCARDIAL INFARCTION
  5. PLAVIX [Concomitant]
     Indication: MYOCARDIAL INFARCTION
  6. TOPROL-XL [Concomitant]
     Indication: HYPERTENSION
  7. ASPIRIN [Concomitant]
     Indication: MYOCARDIAL INFARCTION
  8. FOLIC ACID [Concomitant]
     Indication: PRODUCT USED FOR UNKNOWN INDICATION
  9. VITAMIN B-12 [Concomitant]
     Indication: PRODUCT USED FOR UNKNOWN INDICATION

REACTIONS (3)
  - BLOOD HOMOCYSTEINE INCREASED [None]
  - FLUSHING [None]
  - MYOCARDIAL INFARCTION [None]
